FAERS Safety Report 24229174 (Version 1)
Quarter: 2024Q3

REPORT INFORMATION
  Report Type: Spontaneous
  Country: US (occurrence: None)
  Receive Date: 20240819
  Receipt Date: 20240819
  Transmission Date: 20241016
  Serious: Yes (Disabling)
  Sender: Public
  Company Number: None

PATIENT
  Age: 80 Year
  Sex: Female
  Weight: 60.75 kg

DRUGS (1)
  1. SENOKOT [Suspect]
     Active Substance: SENNOSIDES
     Indication: Constipation
     Dosage: DAILY ORAL ?
     Route: 048
     Dates: start: 20240812, end: 20240817

REACTIONS (4)
  - Dizziness [None]
  - Heart rate irregular [None]
  - Dyspepsia [None]
  - Dyspnoea [None]

NARRATIVE: CASE EVENT DATE: 20240817
